FAERS Safety Report 23244792 (Version 2)
Quarter: 2024Q1

REPORT INFORMATION
  Report Type: Spontaneous
  Country: US (occurrence: US)
  Receive Date: 20231130
  Receipt Date: 20240130
  Transmission Date: 20240410
  Serious: No
  Sender: FDA-Public Use
  Company Number: US-BRISTOL-MYERS SQUIBB COMPANY-2023-173080

PATIENT
  Age: 77 Year
  Sex: Female
  Weight: 71.21 kg

DRUGS (1)
  1. POMALYST [Suspect]
     Active Substance: POMALIDOMIDE
     Indication: Plasma cell myeloma
     Dosage: DAILY 21D ON 7D OFF
     Route: 048
     Dates: start: 20231101

REACTIONS (3)
  - Urinary tract infection [Recovered/Resolved]
  - Dyspnoea [Unknown]
  - Diarrhoea [Unknown]
